FAERS Safety Report 7823832-6 (Version None)
Quarter: 2011Q4

REPORT INFORMATION
  Report Type: 
  Country: None (occurrence: None)
  Receive Date: 20111019
  Receipt Date: 20110805
  Transmission Date: 20120403
  Serious: No
  Sender: FDA-Public Use
  Company Number: US-ASTRAZENECA-2011SE42886

PATIENT
  Age: 51 Year
  Sex: Female

DRUGS (6)
  1. CRESTOR [Suspect]
     Route: 048
  2. ALLERGY MEDICATION [Suspect]
     Route: 065
  3. XANAX [Concomitant]
  4. PROZAC [Concomitant]
  5. SYMBICORT [Suspect]
     Dosage: 160/4.5MCG DAILY
     Route: 055
  6. NEXIUM [Suspect]
     Route: 048

REACTIONS (4)
  - TOOTH DISORDER [None]
  - CYANOSIS [None]
  - BLOOD PRESSURE INCREASED [None]
  - PANIC ATTACK [None]
